FAERS Safety Report 5102901-8 (Version None)
Quarter: 2006Q3

REPORT INFORMATION
  Report Type: 
  Country: None (occurrence: None)
  Receive Date: 20060907
  Receipt Date: 20060821
  Transmission Date: 20061208
  Serious: Yes (Death, Life-Threatening, Hospitalization, Disabling)
  Sender: FDA-Public Use
  Company Number: 2006RR-03594

PATIENT
  Sex: Female
  Weight: 150 kg

DRUGS (9)
  1. ERYTHROMYCIN [Suspect]
     Dosage: 500 MG TID ORAL
     Route: 048
     Dates: start: 20060325, end: 20060403
  2. SIMVASTATIN (SIMVASTATIN) TABLET, 40 MG [Suspect]
     Dosage: 40 MG ORAL
     Route: 048
  3. AMITRYPTYLINE [Concomitant]
  4. BUMETANIDE [Concomitant]
  5. DIHYDROCODODEINE [Concomitant]
  6. LISINOPRIL [Concomitant]
  7. METFORMIN [Concomitant]
  8. ROSIGLITAZONE [Concomitant]
  9. THYROXINE [Concomitant]

REACTIONS (8)
  - CONFUSIONAL STATE [None]
  - DECUBITUS ULCER [None]
  - FALL [None]
  - INFECTED SKIN ULCER [None]
  - RENAL FAILURE ACUTE [None]
  - RHABDOMYOLYSIS [None]
  - SEPSIS [None]
  - SKIN ULCER [None]
